FAERS Safety Report 16475299 (Version 1)
Quarter: 2019Q2

REPORT INFORMATION
  Report Type: Spontaneous
  Country: US (occurrence: US)
  Receive Date: 20190625
  Receipt Date: 20190625
  Transmission Date: 20190711
  Serious: No
  Sender: FDA-Public Use
  Company Number: US-TEVA-2019-US-1060752

PATIENT
  Sex: Female

DRUGS (1)
  1. MICONAZOLE 2% [Suspect]
     Active Substance: MICONAZOLE
     Indication: FUNGAL INFECTION
     Dates: start: 20190527, end: 20190603

REACTIONS (2)
  - Burning sensation [Unknown]
  - Vaginal haemorrhage [Unknown]

NARRATIVE: CASE EVENT DATE: 20190603
